FAERS Safety Report 18002093 (Version 1)
Quarter: 2020Q3

REPORT INFORMATION
  Report Type: Spontaneous
  Country: NZ (occurrence: NZ)
  Receive Date: 20200709
  Receipt Date: 20200709
  Transmission Date: 20201103
  Serious: Yes (Hospitalization, Other)
  Sender: FDA-Public Use
  Company Number: NZ-ASTRAZENECA-2020SE84899

PATIENT
  Age: 82 Year
  Sex: Female

DRUGS (1)
  1. GEFITINIB. [Suspect]
     Active Substance: GEFITINIB
     Indication: LUNG NEOPLASM MALIGNANT
     Dosage: UNKNOWN
     Route: 048

REACTIONS (7)
  - Speech disorder [Unknown]
  - Asthenia [Unknown]
  - Somnolence [Unknown]
  - Dysphagia [Unknown]
  - Disease progression [Not Recovered/Not Resolved]
  - Metastases to meninges [Unknown]
  - Fatigue [Unknown]
